FAERS Safety Report 4370203-3 (Version None)
Quarter: 2004Q2

REPORT INFORMATION
  Report Type: 
  Country: None (occurrence: None)
  Receive Date: 20040603
  Receipt Date: 20040303
  Transmission Date: 20050107
  Serious: No
  Sender: FDA-Public Use
  Company Number: US-BRISTOL-MYERS SQUIBB COMPANY-12559449

PATIENT
  Age: 40 Year
  Sex: Male

DRUGS (4)
  1. ABILIFY [Suspect]
  2. FLUOXETINE [Concomitant]
  3. RISPERDAL [Concomitant]
  4. DEPAKOTE [Concomitant]

REACTIONS (1)
  - DELUSION [None]
